FAERS Safety Report 20799656 (Version 1)
Quarter: 2022Q2

REPORT INFORMATION
  Report Type: Spontaneous
  Country: JP (occurrence: JP)
  Receive Date: 20220509
  Receipt Date: 20220509
  Transmission Date: 20220720
  Serious: Yes (Other)
  Sender: FDA-Public Use
  Company Number: JP-SUN PHARMACEUTICAL INDUSTRIES LTD-2022RR-335908

PATIENT
  Age: 69 Year
  Sex: Female

DRUGS (2)
  1. GEMCITABINE [Suspect]
     Active Substance: GEMCITABINE
     Indication: Adenocarcinoma pancreas
     Dosage: 28700 MILLIGRAM/SQ. METER, IN TOTAL
     Route: 065
  2. PACLITAXEL [Suspect]
     Active Substance: PACLITAXEL
     Indication: Adenocarcinoma pancreas
     Dosage: 5050 MILLIGRAM/SQ. METER, IN TOTAL
     Route: 065

REACTIONS (4)
  - Therapeutic product effect incomplete [Unknown]
  - Raynaud^s phenomenon [Recovering/Resolving]
  - Pain [Unknown]
  - Gangrene [Not Recovered/Not Resolved]
